FAERS Safety Report 6372426-0 (Version None)
Quarter: 2009Q3

REPORT INFORMATION
  Report Type: 
  Country: None (occurrence: None)
  Receive Date: 20090924
  Receipt Date: 20080721
  Transmission Date: 20100115
  Serious: No
  Sender: FDA-Public Use
  Company Number: US-ASTRAZENECA-2008UW15104

PATIENT
  Age: 29133 Day
  Sex: Male
  Weight: 81.6 kg

DRUGS (8)
  1. SEROQUEL [Suspect]
     Indication: ANXIETY
     Dosage: 50 MG ON DAY ONE AND 100 MG ON DAY TWO
     Route: 048
     Dates: start: 20080719
  2. SEROQUEL [Suspect]
     Indication: AGITATION
     Dosage: 50 MG ON DAY ONE AND 100 MG ON DAY TWO
     Route: 048
     Dates: start: 20080719
  3. DIOVAN [Concomitant]
  4. DILTIAZEM [Concomitant]
  5. NEXIUM [Concomitant]
  6. SIMVASTATIN [Concomitant]
  7. ASPIRIN [Concomitant]
  8. LYRICA [Concomitant]

REACTIONS (1)
  - NIGHT SWEATS [None]
